FAERS Safety Report 9431115 (Version 2)
Quarter: 2013Q3

REPORT INFORMATION
  Report Type: Report from Study
  Country: US (occurrence: US)
  Receive Date: 20130730
  Receipt Date: 20130821
  Transmission Date: 20140515
  Serious: Yes (Other)
  Sender: FDA-Public Use
  Company Number: US-BRISTOL-MYERS SQUIBB COMPANY-18454082

PATIENT
  Age: 60 Year
  Sex: Male
  Weight: 105.67 kg

DRUGS (10)
  1. BLINDED: BYDUREON [Suspect]
     Indication: TYPE 2 DIABETES MELLITUS
     Dates: start: 20110901, end: 20111109
  2. BLINDED: PLACEBO [Suspect]
     Indication: TYPE 2 DIABETES MELLITUS
     Dates: start: 20110901, end: 20110926
  3. METFORMIN HCL TABS [Concomitant]
     Indication: HYPERGLYCAEMIA
     Route: 048
     Dates: start: 20110125
  4. GLYBURIDE [Concomitant]
     Indication: HYPERGLYCAEMIA
     Route: 048
     Dates: start: 20110125
  5. LANTUS [Concomitant]
     Indication: HYPERGLYCAEMIA
     Route: 058
     Dates: start: 20110926
  6. LISINOPRIL [Concomitant]
     Indication: HYPERTENSION
     Route: 048
     Dates: start: 20101229
  7. HYDROCHLOROTHIAZIDE [Concomitant]
     Indication: HYPERTENSION
     Dates: start: 20101229
  8. METOPROLOL [Concomitant]
     Indication: HYPERTENSION
     Route: 048
     Dates: start: 20080130
  9. LIPITOR [Concomitant]
     Indication: HYPERLIPIDAEMIA
     Route: 048
     Dates: start: 20101202
  10. ASPIRIN [Concomitant]
     Indication: PROPHYLAXIS
     Route: 048
     Dates: start: 20081110

REACTIONS (1)
  - Pancreatitis [Recovered/Resolved]
